FAERS Safety Report 20191353 (Version 1)
Quarter: 2021Q4

REPORT INFORMATION
  Report Type: Spontaneous
  Country: ES (occurrence: ES)
  Receive Date: 20211216
  Receipt Date: 20211216
  Transmission Date: 20220303
  Serious: Yes (Other)
  Sender: FDA-Public Use
  Company Number: None

PATIENT
  Age: 62 Year
  Sex: Female

DRUGS (2)
  1. PREGABALIN [Interacting]
     Active Substance: PREGABALIN
     Indication: Tremor
     Dosage: UNK ()
     Route: 065
  2. PERAMPANEL [Interacting]
     Active Substance: PERAMPANEL
     Indication: Orthostatic tremor
     Dosage: 2 MILLIGRAM, QD
     Route: 065

REACTIONS (5)
  - Gait disturbance [Unknown]
  - Drug interaction [Unknown]
  - Rebound effect [Unknown]
  - Off label use [Unknown]
  - Orthostatic tremor [Unknown]
